FAERS Safety Report 13780455 (Version 1)
Quarter: 2017Q3

REPORT INFORMATION
  Report Type: Spontaneous
  Country: US (occurrence: US)
  Receive Date: 20170724
  Receipt Date: 20170724
  Transmission Date: 20171127
  Serious: Yes (Other)
  Sender: FDA-Public Use
  Company Number: US-ZYDUS-015798

PATIENT
  Age: 39 Year
  Sex: Male

DRUGS (1)
  1. WARFARIN [Suspect]
     Active Substance: WARFARIN
     Indication: ANTICOAGULANT THERAPY
     Route: 065

REACTIONS (9)
  - Hydrocephalus [Unknown]
  - Headache [Unknown]
  - Tumour haemorrhage [Unknown]
  - Deafness [Unknown]
  - Dizziness [Recovering/Resolving]
  - Ataxia [Recovering/Resolving]
  - Fall [Unknown]
  - Vasogenic cerebral oedema [Unknown]
  - Hemiparesis [Unknown]
